FAERS Safety Report 22112521 (Version 1)
Quarter: 2023Q1

REPORT INFORMATION
  Report Type: Spontaneous
  Country: US (occurrence: US)
  Receive Date: 20230319
  Receipt Date: 20230319
  Transmission Date: 20230417
  Serious: No
  Sender: FDA-Public Use
  Company Number: US-GBT-020829

PATIENT
  Sex: Female

DRUGS (1)
  1. OXBRYTA [Suspect]
     Active Substance: VOXELOTOR
     Indication: Product used for unknown indication
     Route: 048

REACTIONS (4)
  - Ocular hyperaemia [Unknown]
  - Influenza [Unknown]
  - Product dose omission issue [Unknown]
  - Viral infection [Unknown]

NARRATIVE: CASE EVENT DATE: 20230101
